FAERS Safety Report 23533199 (Version 2)
Quarter: 2024Q1

REPORT INFORMATION
  Report Type: Spontaneous
  Country: CA (occurrence: CA)
  Receive Date: 20240216
  Receipt Date: 20240216
  Transmission Date: 20240410
  Serious: Yes (Other)
  Sender: FDA-Public Use
  Company Number: CA-ACERUSPHRM-2024-CA-000100

PATIENT
  Age: 33 Year
  Sex: 0

DRUGS (2)
  1. TESTOSTERONE [Suspect]
     Active Substance: TESTOSTERONE
     Indication: Gender reassignment therapy
  2. UNSPECIFIED INGREDIENT [Concomitant]
     Active Substance: UNSPECIFIED INGREDIENT
     Indication: Endometrial adenocarcinoma

REACTIONS (2)
  - Endometrial adenocarcinoma [Unknown]
  - Product use in unapproved indication [Unknown]
